FAERS Safety Report 8418770-4 (Version None)
Quarter: 2012Q2

REPORT INFORMATION
  Report Type: 
  Country: None (occurrence: None)
  Receive Date: 20120607
  Receipt Date: 20120412
  Transmission Date: 20120825
  Serious: Yes (Death)
  Sender: FDA-Public Use
  Company Number: US-ROCHE-1059194

PATIENT
  Sex: Female

DRUGS (8)
  1. RECLAST [Concomitant]
  2. FORTEO [Concomitant]
  3. DURAGESIC-100 [Concomitant]
     Dosage: 25 MCG/H, Q 72H
  4. NORCO [Concomitant]
     Route: 048
  5. CYMBALTA [Concomitant]
  6. PERCOCET [Concomitant]
  7. BONIVA [Suspect]
     Indication: PRODUCT USED FOR UNKNOWN INDICATION
  8. AVINZA [Concomitant]

REACTIONS (1)
  - DEATH [None]
